FAERS Safety Report 6599301-0 (Version None)
Quarter: 2010Q1

REPORT INFORMATION
  Report Type: 
  Country: None (occurrence: None)
  Receive Date: 20100217
  Receipt Date: 20100201
  Transmission Date: 20100710
  Serious: Yes (Hospitalization)
  Sender: FDA-Public Use
  Company Number: 005917

PATIENT
  Sex: Male
  Weight: 98 kg

DRUGS (4)
  1. VIMPAT [Suspect]
     Indication: EPILEPSY
     Dosage: (350 MG, 150-0-200 MG DAILY ORAL), (200 MG BID ORAL)
     Route: 048
     Dates: start: 20090919, end: 20100114
  2. VIMPAT [Suspect]
     Indication: EPILEPSY
     Dosage: (350 MG, 150-0-200 MG DAILY ORAL), (200 MG BID ORAL)
     Route: 048
     Dates: start: 20100115
  3. OXCARBAZEPINE [Concomitant]
  4. LEVETIRACETAM [Concomitant]

REACTIONS (1)
  - SCIATICA [None]
